FAERS Safety Report 6209316-X (Version None)
Quarter: 2009Q2

REPORT INFORMATION
  Report Type: 
  Country: None (occurrence: None)
  Receive Date: 20090529
  Receipt Date: 20090521
  Transmission Date: 20091009
  Serious: Yes (Other)
  Sender: FDA-Public Use
  Company Number: PL-ABBOTT-09P-129-0575085-00

PATIENT
  Sex: Male

DRUGS (3)
  1. KLACID SUSPENSION [Suspect]
     Indication: BRONCHITIS
     Route: 048
     Dates: start: 20090512, end: 20090519
  2. VITAMINS [Concomitant]
     Indication: DRUG USE FOR UNKNOWN INDICATION
     Route: 048
     Dates: start: 20090501
  3. ZYRTEC [Concomitant]
     Indication: DRUG USE FOR UNKNOWN INDICATION
     Route: 048
     Dates: start: 20090512

REACTIONS (1)
  - HYPOACUSIS [None]
